FAERS Safety Report 15761382 (Version 1)
Quarter: 2018Q4

REPORT INFORMATION
  Report Type: Spontaneous
  Country: PL (occurrence: PL)
  Receive Date: 20181226
  Receipt Date: 20181226
  Transmission Date: 20190205
  Serious: Yes (Other)
  Sender: FDA-Public Use
  Company Number: PL-PROVELL PHARMACEUTICALS-2060558

PATIENT
  Sex: Female

DRUGS (1)
  1. EUTHYROX [Suspect]
     Active Substance: LEVOTHYROXINE SODIUM

REACTIONS (11)
  - Slow response to stimuli [None]
  - Disturbance in attention [None]
  - Feeling abnormal [None]
  - Visual impairment [None]
  - Altered state of consciousness [None]
  - Hypoaesthesia [None]
  - Thinking abnormal [Recovered/Resolved]
  - Speech disorder [None]
  - Gait disturbance [Recovered/Resolved]
  - Dysarthria [None]
  - Fatigue [None]
